FAERS Safety Report 9243428 (Version 1)
Quarter: 2013Q2

REPORT INFORMATION
  Report Type: Spontaneous
  Country: US (occurrence: US)
  Receive Date: 20130421
  Receipt Date: 20130421
  Transmission Date: 20140414
  Serious: No
  Sender: FDA-Public Use
  Company Number: US-ROXANE LABORATORIES, INC.-2013-RO-00529RO

PATIENT
  Sex: Female

DRUGS (1)
  1. PREDNISONE [Suspect]
     Indication: ARTHRITIS
     Dosage: 2.5 MG
     Route: 048
     Dates: start: 2013

REACTIONS (1)
  - Hair growth abnormal [Not Recovered/Not Resolved]
